FAERS Safety Report 8992494 (Version 1)
Quarter: 2012Q4

REPORT INFORMATION
  Report Type: Report from Study
  Country: NL (occurrence: NL)
  Receive Date: 20121231
  Receipt Date: 20121231
  Transmission Date: 20130627
  Serious: Yes (Other)
  Sender: FDA-Public Use
  Company Number: NL-MPIJNJ-2012-09160

PATIENT

DRUGS (5)
  1. VELCADE [Suspect]
     Indication: MULTIPLE MYELOMA
     Dosage: 2.25 mg, UNK
     Route: 058
     Dates: start: 20121204, end: 20121204
  2. CYCLOPHOSPHAMIDE [Suspect]
     Indication: MULTIPLE MYELOMA
     Dosage: 850 mg, UNK
     Route: 042
     Dates: start: 20121204, end: 20121204
  3. DEXAMETHASONE [Suspect]
     Indication: MULTIPLE MYELOMA
     Dosage: 40 mg, UNK
     Route: 048
     Dates: start: 20121204, end: 20121207
  4. COTRIMOXAZOLE [Concomitant]
  5. VALACICLOVIR [Concomitant]

REACTIONS (3)
  - Ischaemia [Not Recovered/Not Resolved]
  - Hemianopia [None]
  - Cerebral infarction [None]
